FAERS Safety Report 25298272 (Version 2)
Quarter: 2025Q2

REPORT INFORMATION
  Report Type: Spontaneous
  Country: US (occurrence: US)
  Receive Date: 20250512
  Receipt Date: 20250526
  Transmission Date: 20250716
  Serious: No
  Sender: ABBVIE
  Company Number: US-ABBVIE-6272485

PATIENT
  Age: 48 Year
  Sex: Female
  Weight: 54.431 kg

DRUGS (4)
  1. BYSTOLIC [Suspect]
     Active Substance: NEBIVOLOL HYDROCHLORIDE
     Indication: Ventricular extrasystoles
     Dosage: FORM STRENGTH: 2.5 MG
     Route: 048
     Dates: start: 201107, end: 201107
  2. BYSTOLIC [Suspect]
     Active Substance: NEBIVOLOL HYDROCHLORIDE
     Indication: Ventricular extrasystoles
     Dosage: FORM STRENGTH: 2.5 MG?HALF TABLET?NOT MORE THAN 2 WEEKS
     Route: 048
     Dates: start: 201107, end: 201107
  3. BYSTOLIC [Suspect]
     Active Substance: NEBIVOLOL HYDROCHLORIDE
     Indication: Ventricular extrasystoles
     Dosage: FORM STRENGTH: 2.5 MG?QUARTER OF A TABLET EVERY OTHER NIGHT?FIRST ADMIN DATE:-JAN-2012 TO -FEB-2012
     Route: 048
     Dates: start: 201201
  4. CLONAZEPAM [Concomitant]
     Active Substance: CLONAZEPAM
     Indication: Panic disorder

REACTIONS (5)
  - Dizziness [Recovered/Resolved]
  - Disorientation [Not Recovered/Not Resolved]
  - Palpitations [Recovered/Resolved]
  - Off label use [Not Recovered/Not Resolved]
  - Ventricular extrasystoles [Recovered/Resolved]

NARRATIVE: CASE EVENT DATE: 20110101
